FAERS Safety Report 10233162 (Version 1)
Quarter: 2014Q2

REPORT INFORMATION
  Report Type: Spontaneous
  Country: GB (occurrence: GB)
  Receive Date: 20140612
  Receipt Date: 20140612
  Transmission Date: 20141212
  Serious: Yes (Hospitalization)
  Sender: FDA-Public Use
  Company Number: GB-MYLANLABS-2014S1012915

PATIENT
  Age: 26 Year
  Sex: Female

DRUGS (6)
  1. VENLAFAXINE [Suspect]
     Dosage: 1575 MG, (7 X 225 MG)
     Dates: start: 20140513
  2. CLOZARIL [Suspect]
     Indication: SCHIZOPHRENIA
     Dosage: 3500 MG (35 X 100 MG)
     Route: 048
     Dates: start: 20140513
  3. CLOZARIL [Suspect]
     Indication: SCHIZOPHRENIA
     Dosage: UNK
     Route: 048
     Dates: start: 20130220
  4. GLICLAZIDE [Suspect]
     Dosage: 280 MG, (7 X 40 MG)
     Dates: start: 20140513
  5. LORAZEPAM [Suspect]
     Dosage: 7 MG, (7 X 1 MG)
     Dates: start: 20140513
  6. TEMAZEPAM [Suspect]
     Dosage: 140 MG, (7 X 20 MG)
     Dates: start: 20140513

REACTIONS (3)
  - Neutrophil count increased [Unknown]
  - Intentional overdose [Unknown]
  - White blood cell count increased [Unknown]
